FAERS Safety Report 14007111 (Version 1)
Quarter: 2017Q3

REPORT INFORMATION
  Report Type: Spontaneous
  Country: US (occurrence: US)
  Receive Date: 20170923
  Receipt Date: 20170923
  Transmission Date: 20171128
  Serious: Yes (Disabling)
  Sender: FDA-Public Use
  Company Number: None

PATIENT
  Age: 34 Year
  Sex: Female

DRUGS (1)
  1. BOTOX [Suspect]
     Active Substance: ONABOTULINUMTOXINA
     Indication: SKIN WRINKLING
     Dates: start: 20170201, end: 20170825

REACTIONS (11)
  - Chills [None]
  - Decreased appetite [None]
  - Dry mouth [None]
  - Gastrointestinal disorder [None]
  - Neuropathy peripheral [None]
  - Burning sensation [None]
  - Paraesthesia [None]
  - Hypoaesthesia [None]
  - Asthenia [None]
  - Abdominal discomfort [None]
  - Weight decreased [None]

NARRATIVE: CASE EVENT DATE: 20170825
